FAERS Safety Report 6909645-8 (Version None)
Quarter: 2010Q3

REPORT INFORMATION
  Report Type: 
  Country: None (occurrence: None)
  Receive Date: 20100805
  Receipt Date: 20100726
  Transmission Date: 20110219
  Serious: Yes (Other)
  Sender: FDA-Public Use
  Company Number: AU-ABBOTT-10P-008-0655767-00

PATIENT
  Sex: Male
  Weight: 140 kg

DRUGS (2)
  1. REDUCTIL [Suspect]
     Indication: PRODUCT USED FOR UNKNOWN INDICATION
     Dates: start: 20091201
  2. REDUCTIL [Suspect]
     Dates: start: 20100401

REACTIONS (1)
  - NEUROPATHY PERIPHERAL [None]
